FAERS Safety Report 15960451 (Version 1)
Quarter: 2019Q1

REPORT INFORMATION
  Report Type: Spontaneous
  Country: US (occurrence: US)
  Receive Date: 20190214
  Receipt Date: 20190214
  Transmission Date: 20190417
  Serious: Yes (Other)
  Sender: FDA-Public Use
  Company Number: US-ROCHE-2114839

PATIENT
  Age: 80 Year
  Sex: Female
  Weight: 59.02 kg

DRUGS (1)
  1. ERIVEDGE [Suspect]
     Active Substance: VISMODEGIB
     Indication: BASAL CELL CARCINOMA
     Route: 048

REACTIONS (2)
  - Alopecia [Unknown]
  - Endocrine test abnormal [Not Recovered/Not Resolved]

NARRATIVE: CASE EVENT DATE: 2018
